FAERS Safety Report 24739028 (Version 1)
Quarter: 2024Q4

REPORT INFORMATION
  Report Type: Spontaneous
  Country: CN (occurrence: CN)
  Receive Date: 20241216
  Receipt Date: 20241216
  Transmission Date: 20250115
  Serious: Yes (Life-Threatening, Hospitalization)
  Sender: TEVA
  Company Number: CN-TEVA-VS-3274299

PATIENT
  Age: 57 Year
  Sex: Female

DRUGS (2)
  1. BENDAMUSTINE [Suspect]
     Active Substance: BENDAMUSTINE
     Indication: Chemotherapy
     Dosage: BENDAMUSTINE HYDROCHLORIDE FOR INJECTION, 90 MG/M2, D1-2 ANTI-TUMOR TREATMENT INFUSION
     Route: 041
     Dates: start: 20241105, end: 20241105
  2. SODIUM CHLORIDE [Concomitant]
     Active Substance: SODIUM CHLORIDE
     Indication: Product used for unknown indication
     Dosage: AS A VEHICLE
     Route: 041
     Dates: start: 20241105, end: 20241105

REACTIONS (2)
  - Myelosuppression [Recovering/Resolving]
  - Platelet count decreased [Recovering/Resolving]

NARRATIVE: CASE EVENT DATE: 20241112
